FAERS Safety Report 7660078-9 (Version None)
Quarter: 2011Q3

REPORT INFORMATION
  Report Type: 
  Country: None (occurrence: None)
  Receive Date: 20110805
  Receipt Date: 20110721
  Transmission Date: 20111222
  Serious: Yes (Hospitalization)
  Sender: FDA-Public Use
  Company Number: PHHY2011JP66836

PATIENT

DRUGS (1)
  1. OCTREOTIDE ACETATE [Suspect]
     Indication: BLOOD GROWTH HORMONE INCREASED
     Dosage: UNK UKN, UNK
     Route: 058

REACTIONS (9)
  - MENINGITIS [None]
  - PYREXIA [None]
  - WHITE BLOOD CELL COUNT INCREASED [None]
  - PITUITARY HAEMORRHAGE [None]
  - BLOOD CORTISOL DECREASED [None]
  - THYROXINE FREE DECREASED [None]
  - HEADACHE [None]
  - MALAISE [None]
  - VOMITING [None]
